FAERS Safety Report 4785344-6 (Version None)
Quarter: 2005Q3

REPORT INFORMATION
  Report Type: 
  Country: None (occurrence: None)
  Receive Date: 20050929
  Receipt Date: 20050920
  Transmission Date: 20060218
  Serious: Yes (Death, Hospitalization)
  Sender: FDA-Public Use
  Company Number: 2005-07-1905

PATIENT
  Age: 37 Year
  Sex: Female
  Weight: 62 kg

DRUGS (7)
  1. PEG-INTRON [Suspect]
     Indication: HEPATITIS C
     Dosage: SEE IMAGE
     Route: 058
     Dates: start: 20050511, end: 20050525
  2. PEG-INTRON [Suspect]
     Indication: HEPATITIS C
     Dosage: SEE IMAGE
     Route: 058
     Dates: start: 20050602, end: 20050602
  3. PEG-INTRON [Suspect]
     Indication: HEPATITIS C
     Dosage: SEE IMAGE
     Route: 058
     Dates: start: 20050611, end: 20050602
  4. REBETOL [Suspect]
     Indication: HEPATITIS C
     Dosage: 800 MG ORAL
     Route: 048
     Dates: start: 20050511, end: 20050607
  5. ZANTAC [Concomitant]
  6. LAC B [Concomitant]
  7. MARZULENE [Concomitant]

REACTIONS (16)
  - ANAEMIA [None]
  - BLOOD DISORDER [None]
  - BRAIN DEATH [None]
  - CEREBELLAR HAEMORRHAGE [None]
  - EPISTAXIS [None]
  - GENERAL PHYSICAL CONDITION ABNORMAL [None]
  - GINGIVAL BLEEDING [None]
  - HAEMORRHAGE [None]
  - HEADACHE [None]
  - HEPATIC FUNCTION ABNORMAL [None]
  - LOSS OF CONSCIOUSNESS [None]
  - PLATELET COUNT DECREASED [None]
  - RESPIRATORY ARREST [None]
  - SURGERY [None]
  - VON WILLEBRAND'S DISEASE [None]
  - WHITE BLOOD CELL COUNT DECREASED [None]
